FAERS Safety Report 9656605 (Version 1)
Quarter: 2013Q4

REPORT INFORMATION
  Report Type: Spontaneous
  Country: US (occurrence: US)
  Receive Date: 20131030
  Receipt Date: 20131030
  Transmission Date: 20140711
  Serious: No
  Sender: FDA-Public Use
  Company Number: US-GLAXOSMITHKLINE-A1036463A

PATIENT
  Age: 78 Year
  Sex: 0

DRUGS (3)
  1. SEREVENT [Suspect]
     Indication: BRONCHIAL DISORDER
     Dosage: 1PUFF UNKNOWN
     Route: 055
     Dates: start: 201305, end: 201306
  2. SIMVASTATIN [Concomitant]
  3. CAPTOPRIL [Concomitant]

REACTIONS (3)
  - Drug ineffective [Recovering/Resolving]
  - Drug ineffective [Unknown]
  - Product quality issue [Unknown]
